FAERS Safety Report 13913592 (Version 1)
Quarter: 2017Q3

REPORT INFORMATION
  Report Type: Spontaneous
  Country: US (occurrence: US)
  Receive Date: 20170829
  Receipt Date: 20170829
  Transmission Date: 20171127
  Serious: Yes (Death, Life-Threatening, Hospitalization)
  Sender: FDA-Public Use
  Company Number: US-TORRENT-00003293

PATIENT
  Age: 76 Year
  Sex: Female

DRUGS (4)
  1. AZITHROMYCIN ANHYDROUS. [Suspect]
     Active Substance: AZITHROMYCIN ANHYDROUS
  2. LEVOFLOXACIN. [Suspect]
     Active Substance: LEVOFLOXACIN
  3. MEROPENEM TRIHYDRATE [Suspect]
     Active Substance: MEROPENEM
  4. CEFTRIAXONE SODIUM. [Suspect]
     Active Substance: CEFTRIAXONE SODIUM

REACTIONS (4)
  - Abdominal wall haematoma [Unknown]
  - Coagulation factor V level decreased [Fatal]
  - Subdural haematoma [Fatal]
  - Cerebral haemorrhage [Fatal]
